FAERS Safety Report 8541096-5 (Version None)
Quarter: 2012Q3

REPORT INFORMATION
  Report Type: 
  Country: None (occurrence: None)
  Receive Date: 20120726
  Receipt Date: 20110817
  Transmission Date: 20120928
  Serious: No
  Sender: FDA-Public Use
  Company Number: US-ASTRAZENECA-2011SE49560

PATIENT
  Sex: Male

DRUGS (6)
  1. PRAZOSIN [Concomitant]
     Route: 048
     Dates: start: 20110523
  2. TOPIRAMATE [Concomitant]
     Route: 048
     Dates: start: 20110503
  3. FOLIC ACID [Concomitant]
     Route: 048
     Dates: start: 20110606
  4. BUPROPION HCL [Concomitant]
     Dosage: TAKE ON TABLET BY MOUTH EVERY MORNING AND EARLY AFTERNOON
     Route: 048
     Dates: start: 20110523
  5. PAROXETINE [Concomitant]
     Route: 048
     Dates: start: 20110613
  6. SEROQUEL [Suspect]
     Dosage: HALF DAILY IN MORNING AND HALF DAILY IN AFTERNOON AND ONE AND HALF AT NIGHT
     Route: 048
     Dates: start: 20110621

REACTIONS (2)
  - AFFECT LABILITY [None]
  - WRONG TECHNIQUE IN DRUG USAGE PROCESS [None]
